FAERS Safety Report 4683709-4 (Version None)
Quarter: 2005Q2

REPORT INFORMATION
  Report Type: 
  Country: None (occurrence: None)
  Receive Date: 20050607
  Receipt Date: 20050531
  Transmission Date: 20051028
  Serious: Yes (Hospitalization)
  Sender: FDA-Public Use
  Company Number: US-BRISTOL-MYERS SQUIBB COMPANY-12989398

PATIENT
  Age: 70 Year
  Sex: Female
  Weight: 71 kg

DRUGS (4)
  1. CETUXIMAB [Suspect]
     Indication: SQUAMOUS CELL CARCINOMA
     Dosage: 1ST COURSE CETUXIMAB ON 30-MAR-2005. WEEK 1 LOADING DOSE 400 MG/M2. WEEKS 2-7, WEEKLY 250 MG/M2.
     Dates: start: 20050510, end: 20050510
  2. DOCETAXEL [Suspect]
     Indication: SQUAMOUS CELL CARCINOMA
     Dosage: 1ST COURSE DOCETAXEL 30-MAR-2005. WEEKS 2-7 DOCETAXEL WEEKLY 15 MG/M2.
     Dates: start: 20050510, end: 20050510
  3. RADIATION THERAPY [Suspect]
     Indication: SQUAMOUS CELL CARCINOMA
     Dosage: COURSE 1 RADIATION 30-MAR-2005. WEEKS 2-7 5 TIMES/WEEK. EXTERNAL BEAM NOS 60 GRAY (GY) 30 FRACTIONS.
     Dates: start: 20050513, end: 20050513
  4. DERMOPLAST [Suspect]

REACTIONS (6)
  - DRUG HYPERSENSITIVITY [None]
  - PAIN [None]
  - RASH [None]
  - SKIN HAEMORRHAGE [None]
  - SKIN IRRITATION [None]
  - THERMAL BURN [None]
